FAERS Safety Report 19214816 (Version 2)
Quarter: 2021Q2

REPORT INFORMATION
  Report Type: Spontaneous
  Country: US (occurrence: US)
  Receive Date: 20210504
  Receipt Date: 20210505
  Transmission Date: 20210717
  Serious: No
  Sender: FDA-Public Use
  Company Number: US-SA-2021SA132679

PATIENT
  Age: 56 Year
  Sex: Male

DRUGS (4)
  1. NOVOLIN NOS [Concomitant]
     Active Substance: INSULIN HUMAN
     Dosage: UNK
     Route: 065
  2. HUMULINE [Concomitant]
     Dosage: UNK
     Route: 065
  3. TOUJEO MAX [Suspect]
     Active Substance: INSULIN GLARGINE
     Dosage: 72 IU, QD
     Route: 065
     Dates: start: 202104
  4. TOUJEO MAX [Suspect]
     Active Substance: INSULIN GLARGINE
     Indication: TYPE 1 DIABETES MELLITUS
     Dosage: 38 IU, QD
     Route: 065
     Dates: start: 202104

REACTIONS (3)
  - Blood glucose increased [Recovering/Resolving]
  - Drug ineffective [Recovering/Resolving]
  - Intentional product use issue [Unknown]
